FAERS Safety Report 4335156-2 (Version None)
Quarter: 2004Q2

REPORT INFORMATION
  Report Type: 
  Country: None (occurrence: None)
  Receive Date: 20040402
  Receipt Date: 20040108
  Transmission Date: 20050107
  Serious: Yes (Life-Threatening, Hospitalization)
  Sender: FDA-Public Use
  Company Number: 234703

PATIENT
  Age: 18 Year
  Sex: Female

DRUGS (4)
  1. NOVOLOG [Suspect]
     Indication: DIABETES MELLITUS INSULIN-DEPENDENT
     Dosage: SLIDING SCALE; SUBCUTANEOUS
     Route: 058
     Dates: start: 20040107, end: 20040107
  2. NOVOLIN 70/30 INNOLET (INSULIN HUMAN) [Concomitant]
  3. METFORMIN [Concomitant]
  4. ACE INHIBITOR NOS [Concomitant]

REACTIONS (1)
  - ANAPHYLACTIC REACTION [None]
